FAERS Safety Report 9559315 (Version 1)
Quarter: 2013Q3

REPORT INFORMATION
  Report Type: Spontaneous
  Country: US (occurrence: US)
  Receive Date: 20130927
  Receipt Date: 20130927
  Transmission Date: 20140515
  Serious: Yes (Hospitalization, Other)
  Sender: FDA-Public Use
  Company Number: PHEH2013US019907

PATIENT
  Sex: Female

DRUGS (8)
  1. EXFORGE HCT [Suspect]
     Dosage: 1 DF, QD (VALS 160 MG, AMLO 5 MG )
  2. METFORMIN [Concomitant]
  3. PANTOPRAZOLE [Concomitant]
  4. FUROSEMIDE [Concomitant]
  5. ATORVASTATIN [Concomitant]
  6. THYROID [Concomitant]
  7. LOVENOX [Concomitant]
  8. COUMADINE [Concomitant]

REACTIONS (4)
  - Pulmonary thrombosis [Unknown]
  - Diabetes mellitus [Unknown]
  - Cardiac disorder [Unknown]
  - Blood pressure increased [Unknown]
